FAERS Safety Report 12848183 (Version 1)
Quarter: 2016Q4

REPORT INFORMATION
  Report Type: Spontaneous
  Country: US (occurrence: US)
  Receive Date: 20161014
  Receipt Date: 20161014
  Transmission Date: 20170207
  Serious: No
  Sender: FDA-Public Use
  Company Number: US-JNJFOC-20160717695

PATIENT
  Age: 85 Year
  Sex: Male
  Weight: 59.88 kg

DRUGS (1)
  1. TYLENOL EXTRA STRENGTH [Suspect]
     Active Substance: ACETAMINOPHEN
     Indication: ANALGESIC THERAPY
     Dosage: 1 CAPLET, 2-3 TIMES A DAY
     Route: 048

REACTIONS (2)
  - Product contamination [Unknown]
  - Incorrect dose administered [Unknown]
